FAERS Safety Report 5554932-1 (Version None)
Quarter: 2007Q4

REPORT INFORMATION
  Report Type: 
  Country: None (occurrence: None)
  Receive Date: 20071213
  Receipt Date: 20071204
  Transmission Date: 20080405
  Serious: Yes (Hospitalization)
  Sender: FDA-Public Use
  Company Number: FR-ASTRAZENECA-2007CG01233

PATIENT
  Age: 67 Year
  Sex: Male

DRUGS (8)
  1. TENORMIN [Suspect]
     Route: 048
     Dates: start: 20010321, end: 20070515
  2. MOPRAL [Concomitant]
     Route: 048
  3. FLECAINIDE ACETATE [Concomitant]
     Indication: ARRHYTHMIA SUPRAVENTRICULAR
     Route: 048
     Dates: start: 20070321, end: 20070521
  4. FLECAINIDE ACETATE [Concomitant]
     Route: 048
     Dates: start: 20070701
  5. CHRONADALATE [Concomitant]
     Route: 048
     Dates: end: 20070521
  6. MEDIATENSYL [Concomitant]
     Route: 048
  7. KARDEGIC [Concomitant]
     Indication: ARRHYTHMIA SUPRAVENTRICULAR
     Route: 048
     Dates: start: 20070321
  8. CORTANCYL [Concomitant]
     Indication: ARTHRALGIA
     Route: 048

REACTIONS (1)
  - CUTANEOUS LUPUS ERYTHEMATOSUS [None]
